FAERS Safety Report 10468407 (Version 1)
Quarter: 2014Q3

REPORT INFORMATION
  Report Type: Spontaneous
  Country: US (occurrence: US)
  Receive Date: 20140922
  Receipt Date: 20140922
  Transmission Date: 20150326
  Serious: No
  Sender: FDA-Public Use
  Company Number: US-ALLERGAN-1403726US

PATIENT
  Age: 80 Year
  Sex: Female

DRUGS (4)
  1. OTC ITCH DROPS NOS [Concomitant]
     Indication: EYE PRURITUS
  2. SYSTANE [Concomitant]
     Active Substance: HYPROMELLOSE 2910 (4000 MPA.S)
     Indication: DRY EYE
     Dosage: UNK
  3. THERATEARS [Concomitant]
     Active Substance: CARBOXYMETHYLCELLULOSE SODIUM
     Indication: EYE PRURITUS
     Dosage: UNK
  4. LASTACAFT [Suspect]
     Active Substance: ALCAFTADINE
     Indication: EYE PRURITUS
     Dosage: 2 GTT, UNK
     Route: 047
     Dates: start: 20140224, end: 20140224

REACTIONS (5)
  - Eye disorder [Unknown]
  - Eye swelling [Not Recovered/Not Resolved]
  - Skin wrinkling [Unknown]
  - Eyelid oedema [Not Recovered/Not Resolved]
  - Nasal congestion [Unknown]
